FAERS Safety Report 5353445-X (Version None)
Quarter: 2007Q2

REPORT INFORMATION
  Report Type: 
  Country: None (occurrence: None)
  Receive Date: 20070612
  Receipt Date: 20070530
  Transmission Date: 20071010
  Serious: Yes (Other)
  Sender: FDA-Public Use
  Company Number: PHRM2007FR01559

PATIENT
  Sex: Female

DRUGS (1)
  1. NISIS [Suspect]
     Indication: HYPERTENSION
     Route: 048

REACTIONS (4)
  - BLOOD CREATININE INCREASED [None]
  - BLOOD UREA INCREASED [None]
  - HYPERCALCAEMIA [None]
  - RENAL FAILURE [None]
